FAERS Safety Report 9370650 (Version 4)
Quarter: 2013Q3

REPORT INFORMATION
  Report Type: Spontaneous
  Country: FR (occurrence: FR)
  Receive Date: 20130626
  Receipt Date: 20130823
  Transmission Date: 20140515
  Serious: Yes (Hospitalization)
  Sender: FDA-Public Use
  Company Number: FR-TEVA-415341ISR

PATIENT
  Age: 84 Year
  Sex: Male

DRUGS (1)
  1. FUROSEMIDE TEVA [Suspect]
     Indication: PRODUCT USED FOR UNKNOWN INDICATION
     Route: 048

REACTIONS (5)
  - Acute pulmonary oedema [Unknown]
  - Nervous system disorder [Unknown]
  - Cardiac failure [Unknown]
  - Left ventricular failure [Recovered/Resolved]
  - Dyspnoea [Recovered/Resolved]
